FAERS Safety Report 13072092 (Version 2)
Quarter: 2017Q2

REPORT INFORMATION
  Report Type: Report from Study
  Country: None (occurrence: DE)
  Receive Date: 20161229
  Receipt Date: 20170619
  Transmission Date: 20170830
  Serious: Yes (Hospitalization)
  Sender: FDA-Public Use
  Company Number: DE-ABBVIE-16K-062-1818591-00

PATIENT
  Age: 76 Year
  Sex: Male

DRUGS (15)
  1. IBUHEXAL [Concomitant]
     Active Substance: IBUPROFEN
     Indication: PRODUCT USED FOR UNKNOWN INDICATION
  2. PREDNISOLON [Concomitant]
     Active Substance: PREDNISOLONE
     Indication: PRODUCT USED FOR UNKNOWN INDICATION
  3. MADOPAR [Concomitant]
     Active Substance: BENSERAZIDE HYDROCHLORIDE\LEVODOPA
     Indication: PRODUCT USED FOR UNKNOWN INDICATION
  4. TOLCAPONE. [Concomitant]
     Active Substance: TOLCAPONE
     Indication: PRODUCT USED FOR UNKNOWN INDICATION
  5. FOLVERLAN [Concomitant]
     Active Substance: FOLIC ACID
     Indication: PRODUCT USED FOR UNKNOWN INDICATION
  6. DUODOPA [Suspect]
     Active Substance: CARBIDOPA\LEVODOPA
     Indication: PARKINSON^S DISEASE
     Dosage: MD: 15.0ML; CRD: 9.0ML/H; CRN: 3.0ML/H; ED: 2.0ML
     Route: 050
     Dates: start: 20161117, end: 20170201
  7. METRONIDAZOL [Concomitant]
     Active Substance: METRONIDAZOLE
     Indication: PRODUCT USED FOR UNKNOWN INDICATION
  8. TOREM [Concomitant]
     Active Substance: TORSEMIDE
     Indication: PRODUCT USED FOR UNKNOWN INDICATION
  9. NEUPRO [Concomitant]
     Active Substance: ROTIGOTINE
     Indication: PRODUCT USED FOR UNKNOWN INDICATION
  10. PRETERAX [Concomitant]
     Active Substance: INDAPAMIDE\PERINDOPRIL
     Indication: PRODUCT USED FOR UNKNOWN INDICATION
  11. MONO EMBOLEX [Concomitant]
     Active Substance: CERTOPARIN SODIUM
     Indication: PRODUCT USED FOR UNKNOWN INDICATION
  12. GASTROZEPIN [Concomitant]
     Active Substance: PIRENZEPINE HYDROCHLORIDE
     Indication: PRODUCT USED FOR UNKNOWN INDICATION
  13. SEROQUEL [Concomitant]
     Active Substance: QUETIAPINE FUMARATE
     Indication: PRODUCT USED FOR UNKNOWN INDICATION
  14. TAMSUNAR [Concomitant]
     Indication: PRODUCT USED FOR UNKNOWN INDICATION
  15. VITAMIN B12 [Concomitant]
     Active Substance: CYANOCOBALAMIN
     Indication: PRODUCT USED FOR UNKNOWN INDICATION

REACTIONS (7)
  - Colitis microscopic [Recovered/Resolved with Sequelae]
  - Gastrointestinal disorder [Not Recovered/Not Resolved]
  - Hospitalisation [Not Recovered/Not Resolved]
  - Cachexia [Unknown]
  - Deep brain stimulation [Unknown]
  - Drug effect decreased [Unknown]
  - Diarrhoea [Recovered/Resolved]

NARRATIVE: CASE EVENT DATE: 201612
